FAERS Safety Report 17843761 (Version 3)
Quarter: 2020Q3

REPORT INFORMATION
  Report Type: Spontaneous
  Country: US (occurrence: US)
  Receive Date: 20200531
  Receipt Date: 20200701
  Transmission Date: 20201104
  Serious: No
  Sender: FDA-Public Use
  Company Number: US-BEH-2020117915

PATIENT
  Age: 66 Year
  Sex: Female
  Weight: 58.96 kg

DRUGS (3)
  1. VALIUM [Interacting]
     Active Substance: DIAZEPAM
     Dosage: VARIED, EVERY 4?6 HOURS
     Route: 065
     Dates: start: 202003
  2. HYOSCYAMINE. [Interacting]
     Active Substance: HYOSCYAMINE
     Dosage: 0.125 MILLIGRAM SH, Q4H
     Route: 065
     Dates: start: 2019, end: 20200519
  3. PRIVIGEN [Suspect]
     Active Substance: HUMAN IMMUNOGLOBULIN G
     Indication: CEREBRAL ATAXIA
     Dosage: 20 GRAM, EVERY 10 DAYS
     Route: 065
     Dates: start: 20200317, end: 20200606

REACTIONS (4)
  - Product use in unapproved indication [Unknown]
  - Irritability [Recovering/Resolving]
  - Drug ineffective for unapproved indication [Unknown]
  - Drug interaction [Recovered/Resolved]

NARRATIVE: CASE EVENT DATE: 20200317
